FAERS Safety Report 19051399 (Version 1)
Quarter: 2021Q1

REPORT INFORMATION
  Report Type: Spontaneous
  Country: US (occurrence: US)
  Receive Date: 20210324
  Receipt Date: 20210324
  Transmission Date: 20210420
  Serious: No
  Sender: FDA-Public Use
  Company Number: US-SA-2021SA073870

PATIENT
  Sex: Female

DRUGS (2)
  1. AVAPRO [Suspect]
     Active Substance: IRBESARTAN
     Dosage: UNK
  2. IRBESARTAN WINTHROP [Suspect]
     Active Substance: IRBESARTAN
     Dosage: UNK

REACTIONS (1)
  - Blood pressure inadequately controlled [Unknown]
